FAERS Safety Report 17727772 (Version 2)
Quarter: 2020Q2

REPORT INFORMATION
  Report Type: Spontaneous
  Country: IN (occurrence: IN)
  Receive Date: 20200430
  Receipt Date: 20200512
  Transmission Date: 20200714
  Serious: Yes (Life-Threatening)
  Sender: FDA-Public Use
  Company Number: IN-BIOVITRUM-2020IN2033

PATIENT
  Age: 10 Year
  Sex: Male
  Weight: 26 kg

DRUGS (2)
  1. TABLET SODAMINT [Concomitant]
     Indication: RENAL TUBULAR ACIDOSIS
     Dosage: 2 TABLETS
     Route: 048
     Dates: start: 201406
  2. NITISINONE [Suspect]
     Active Substance: NITISINONE
     Indication: PRODUCT USED FOR UNKNOWN INDICATION
     Dates: start: 201606

REACTIONS (2)
  - Hepatocellular carcinoma [Not Recovered/Not Resolved]
  - Alpha 1 foetoprotein increased [Unknown]

NARRATIVE: CASE EVENT DATE: 20200420
